FAERS Safety Report 6274507-9 (Version None)
Quarter: 2009Q3

REPORT INFORMATION
  Report Type: 
  Country: None (occurrence: None)
  Receive Date: 20090716
  Receipt Date: 20090708
  Transmission Date: 20100115
  Serious: Yes (Other)
  Sender: FDA-Public Use
  Company Number: 2009US002709

PATIENT

DRUGS (2)
  1. PROGRAF [Suspect]
     Indication: RENAL TRANSPLANT
  2. CORTICOSTEROID NOS (CORTICOSTEROID) [Concomitant]

REACTIONS (2)
  - DIABETES MELLITUS [None]
  - REITER'S SYNDROME [None]
